FAERS Safety Report 4657241-8 (Version None)
Quarter: 2005Q2

REPORT INFORMATION
  Report Type: 
  Country: None (occurrence: None)
  Receive Date: 20050408
  Receipt Date: 20050205
  Transmission Date: 20051028
  Serious: No
  Sender: FDA-Public Use
  Company Number: 230457K05USA

PATIENT
  Age: 47 Year
  Sex: Female

DRUGS (1)
  1. REBIF [Suspect]
     Indication: MULTIPLE SCLEROSIS

REACTIONS (4)
  - GASTROENTERITIS VIRAL [None]
  - HEADACHE [None]
  - RASH [None]
  - URTICARIA [None]
